FAERS Safety Report 8528508 (Version 23)
Quarter: 2015Q1

REPORT INFORMATION
  Report Type: Spontaneous
  Country: CA (occurrence: CA)
  Receive Date: 20120424
  Receipt Date: 20150115
  Transmission Date: 20150721
  Serious: Yes (Other)
  Sender: FDA-Public Use
  Company Number: CA-ROCHE-1060160

PATIENT
  Age: 46 Year
  Sex: Male

DRUGS (6)
  1. XOLAIR [Suspect]
     Active Substance: OMALIZUMAB
     Indication: BRONCHOPULMONARY ASPERGILLOSIS ALLERGIC
     Route: 058
     Dates: start: 20130816
  2. XOLAIR [Suspect]
     Active Substance: OMALIZUMAB
     Route: 058
     Dates: start: 20130913
  3. XOLAIR [Suspect]
     Active Substance: OMALIZUMAB
     Route: 058
     Dates: start: 20150107
  4. XOLAIR [Suspect]
     Active Substance: OMALIZUMAB
     Indication: ASTHMA
     Route: 058
     Dates: start: 20100826
  5. XOLAIR [Suspect]
     Active Substance: OMALIZUMAB
     Route: 058
     Dates: start: 20140904
  6. AMOXICILLIN. [Concomitant]
     Active Substance: AMOXICILLIN

REACTIONS (19)
  - Nasopharyngitis [Recovering/Resolving]
  - Road traffic accident [Unknown]
  - Neck pain [Unknown]
  - Rash [Recovering/Resolving]
  - Haemorrhage [Unknown]
  - Limb discomfort [Unknown]
  - Bronchitis [Unknown]
  - Pruritus [Unknown]
  - Productive cough [Not Recovered/Not Resolved]
  - Lower respiratory tract infection [Unknown]
  - Heart rate increased [Unknown]
  - Oropharyngeal pain [Not Recovered/Not Resolved]
  - Paraesthesia [Unknown]
  - Wheezing [Unknown]
  - Back pain [Unknown]
  - Dermatitis allergic [Recovering/Resolving]
  - Blood pressure increased [Unknown]
  - Swelling [Unknown]
  - Chills [Unknown]

NARRATIVE: CASE EVENT DATE: 20110309
